FAERS Safety Report 12280193 (Version 1)
Quarter: 2016Q2

REPORT INFORMATION
  Report Type: Other
  Country: AR (occurrence: AR)
  Receive Date: 20160419
  Receipt Date: 20160419
  Transmission Date: 20160815
  Serious: Yes (Disabling)
  Sender: FDA-Public Use
  Company Number: AR-ORCHID HEALTHCARE-1050697

PATIENT
  Age: 76 Year
  Sex: Male

DRUGS (1)
  1. ROPINIROLE HYDROCHLORIDE. [Suspect]
     Active Substance: ROPINIROLE HYDROCHLORIDE
     Indication: PARKINSON^S DISEASE
     Route: 065

REACTIONS (2)
  - Camptocormia [Unknown]
  - Torticollis [Recovered/Resolved]
